FAERS Safety Report 4430688-0 (Version None)
Quarter: 2004Q3

REPORT INFORMATION
  Report Type: 
  Country: None (occurrence: None)
  Receive Date: 20040819
  Receipt Date: 20040819
  Transmission Date: 20050211
  Serious: Yes (Hospitalization)
  Sender: FDA-Public Use
  Company Number: None

PATIENT
  Sex: Male
  Weight: 72.5755 kg

DRUGS (9)
  1. IBUPROFEN [Suspect]
     Indication: BACK PAIN
     Dosage: 800 MG QID
     Dates: start: 20040602
  2. APAP TAB [Concomitant]
  3. ATENOLOL [Concomitant]
  4. BUPROPION HCL [Concomitant]
  5. FOLIC ACID [Concomitant]
  6. LASIX [Concomitant]
  7. HYDROXYZINE [Concomitant]
  8. SPIRONOLACTONE [Concomitant]
  9. THIAMINE [Concomitant]

REACTIONS (1)
  - LOWER GASTROINTESTINAL HAEMORRHAGE [None]
